FAERS Safety Report 7016236-X (Version None)
Quarter: 2010Q3

REPORT INFORMATION
  Report Type: 
  Country: None (occurrence: None)
  Receive Date: 20100927
  Receipt Date: 20090817
  Transmission Date: 20110219
  Serious: No
  Sender: FDA-Public Use
  Company Number: US-ASTRAZENECA-2009SE08435

PATIENT
  Age: 63 Year
  Sex: Female
  Weight: 84.8 kg

DRUGS (4)
  1. ARIMIDEX [Suspect]
     Indication: BREAST CANCER
     Route: 048
     Dates: start: 20090707
  2. M.V.I. [Concomitant]
  3. LISINOPRIL [Concomitant]
     Indication: HYPERTENSION
  4. ASPIRIN [Concomitant]

REACTIONS (3)
  - ARTHRALGIA [None]
  - BODY HEIGHT DECREASED [None]
  - MYALGIA [None]
